FAERS Safety Report 6141101-X (Version None)
Quarter: 2009Q2

REPORT INFORMATION
  Report Type: 
  Country: None (occurrence: None)
  Receive Date: 20090402
  Receipt Date: 20090325
  Transmission Date: 20091009
  Serious: Yes (Hospitalization)
  Sender: FDA-Public Use
  Company Number: PHHY2009IT11493

PATIENT
  Sex: Female

DRUGS (3)
  1. VOLTAREN [Suspect]
     Indication: MENISCUS OPERATION
     Dosage: 50MG
     Route: 048
     Dates: start: 20090312, end: 20090322
  2. CLEXANE [Interacting]
     Indication: MENISCUS OPERATION
     Dosage: 4000IU
     Route: 048
     Dates: start: 20090312, end: 20090322
  3. MEPRAL [Concomitant]
     Dosage: 20MG

REACTIONS (1)
  - DIVERTICULITIS INTESTINAL HAEMORRHAGIC [None]
